FAERS Safety Report 7267886-7 (Version None)
Quarter: 2011Q1

REPORT INFORMATION
  Report Type: 
  Country: None (occurrence: None)
  Receive Date: 20110201
  Receipt Date: 20110125
  Transmission Date: 20110831
  Serious: Yes (Death, Other)
  Sender: FDA-Public Use
  Company Number: JP-ROCHE-756139

PATIENT
  Sex: Male
  Weight: 41 kg

DRUGS (20)
  1. TOCILIZUMAB [Suspect]
     Route: 041
     Dates: start: 20090701, end: 20091021
  2. TOCILIZUMAB [Suspect]
     Route: 041
     Dates: start: 20091125, end: 20091125
  3. PARIET [Concomitant]
     Route: 048
  4. D-ALFA [Concomitant]
     Route: 048
  5. ISOSORBIDE DINITRATE [Concomitant]
     Dosage: FORM: TAPE.
     Route: 062
  6. NITOROL [Concomitant]
     Dosage: FORM: PERORAL AGENT.
     Route: 048
  7. TOCILIZUMAB [Suspect]
     Route: 041
     Dates: start: 20090314, end: 20090314
  8. TOCILIZUMAB [Suspect]
     Route: 041
     Dates: start: 20090415, end: 20090415
  9. TOCILIZUMAB [Suspect]
     Route: 041
     Dates: start: 20090509, end: 20090509
  10. PREDONINE [Concomitant]
     Dosage: FORM: PERORAL AGENT.
     Route: 048
  11. TOCILIZUMAB [Suspect]
     Indication: RHEUMATOID ARTHRITIS
     Route: 041
     Dates: start: 20090119, end: 20100119
  12. TOCILIZUMAB [Suspect]
     Route: 041
     Dates: start: 20090603, end: 20090603
  13. TOCILIZUMAB [Suspect]
     Route: 041
     Dates: start: 20090214, end: 20090214
  14. NORVASC [Concomitant]
     Route: 048
  15. CELECOXIB [Concomitant]
     Route: 048
  16. RINDERON-DP [Concomitant]
     Dosage: FORM: CREAM. DOSE REGIMEN: 1
     Route: 048
  17. FUROSEMIDE [Concomitant]
     Route: 048
  18. TOCILIZUMAB [Suspect]
     Route: 041
     Dates: start: 20091216, end: 20100113
  19. MUCOSTA [Concomitant]
     Dosage: FORM: PERORAL.
     Route: 048
  20. SIGMART [Concomitant]
     Route: 048

REACTIONS (9)
  - PYELONEPHRITIS ACUTE [None]
  - RENAL FAILURE ACUTE [None]
  - URINARY TRACT INFECTION [None]
  - CLOSTRIDIUM DIFFICILE COLITIS [None]
  - HYPERCALCAEMIA [None]
  - SEPTIC SHOCK [None]
  - PNEUMONIA [None]
  - IRON DEFICIENCY ANAEMIA [None]
  - MALNUTRITION [None]
